FAERS Safety Report 4366897-9 (Version None)
Quarter: 2004Q2

REPORT INFORMATION
  Report Type: 
  Country: None (occurrence: None)
  Receive Date: 20040524
  Receipt Date: 20040510
  Transmission Date: 20050107
  Serious: Yes (Death, Hospitalization, Other)
  Sender: FDA-Public Use
  Company Number: US-SHR-03-012708

PATIENT
  Age: 63 Year
  Sex: Male
  Weight: 65.8 kg

DRUGS (16)
  1. BETASERON [Suspect]
     Indication: MULTIPLE SCLEROSIS
     Dosage: SEE IMAGE
     Route: 058
     Dates: start: 20021107, end: 20030901
  2. BETASERON [Suspect]
     Indication: MULTIPLE SCLEROSIS
     Dosage: SEE IMAGE
     Route: 058
     Dates: start: 20040320, end: 20040412
  3. LAMISIL [Concomitant]
  4. NIZORAL-LIQUID (KETOCONAZOLE) [Concomitant]
  5. NIZORAL [Concomitant]
  6. DARVOCET-N 100 [Concomitant]
  7. AMANTADINE HCL [Concomitant]
  8. CELEXA [Concomitant]
  9. BACLOFEN [Concomitant]
  10. DEPAKOTE [Concomitant]
  11. IMITREX ^GLAXO^ (SUMATRIPTAN) [Concomitant]
  12. COUMADIN [Concomitant]
  13. DIFLUCAN /UNK/(FLUCONAZOLE) [Concomitant]
  14. LOTRIMIN [Concomitant]
  15. DETROL [Concomitant]
  16. NOVANTRONE ^IMMUNEX^ (MITOXANTRONE HYDROCHLORIDE) [Concomitant]

REACTIONS (20)
  - ANAEMIA [None]
  - CONDITION AGGRAVATED [None]
  - CONVULSION [None]
  - DELIRIUM [None]
  - EXTREMITY NECROSIS [None]
  - GENERAL PHYSICAL HEALTH DETERIORATION [None]
  - IMPAIRED HEALING [None]
  - INJECTION SITE REACTION [None]
  - LOCALISED INFECTION [None]
  - MULTIPLE SCLEROSIS [None]
  - OPEN WOUND [None]
  - PROSTATISM [None]
  - PSEUDOMONAS INFECTION [None]
  - RASH PRURITIC [None]
  - RENAL FAILURE ACUTE [None]
  - SEPSIS [None]
  - SKIN LESION [None]
  - SKIN ULCER [None]
  - TINEA PEDIS [None]
  - WOUND SECRETION [None]
